FAERS Safety Report 4695123-6 (Version None)
Quarter: 2005Q2

REPORT INFORMATION
  Report Type: 
  Country: None (occurrence: None)
  Receive Date: 20050620
  Receipt Date: 20050614
  Transmission Date: 20051028
  Serious: Yes (Hospitalization, Other)
  Sender: FDA-Public Use
  Company Number: DE-MERCK-0506DEU00128

PATIENT
  Age: 45 Year
  Sex: Male

DRUGS (2)
  1. VIOXX [Suspect]
     Indication: MIGRAINE
     Route: 048
     Dates: end: 20040101
  2. RIZATRIPTAN BENZOATE [Concomitant]
     Indication: MIGRAINE
     Route: 048

REACTIONS (3)
  - ARRHYTHMIA [None]
  - POLYTRAUMATISM [None]
  - ROAD TRAFFIC ACCIDENT [None]
